FAERS Safety Report 7118507-5 (Version None)
Quarter: 2010Q4

REPORT INFORMATION
  Report Type: 
  Country: None (occurrence: None)
  Receive Date: 20101123
  Receipt Date: 20100308
  Transmission Date: 20110411
  Serious: No
  Sender: FDA-Public Use
  Company Number: US-MYLANLABS-2010S1004070

PATIENT
  Age: 65 Year
  Sex: Female

DRUGS (3)
  1. CLONAZEPAM [Suspect]
     Route: 048
     Dates: start: 20100216
  2. ACIPHEX [Concomitant]
  3. DIOVAN [Concomitant]

REACTIONS (1)
  - ORAL DISCOMFORT [None]
